FAERS Safety Report 7501790-1 (Version None)
Quarter: 2011Q2

REPORT INFORMATION
  Report Type: 
  Country: None (occurrence: None)
  Receive Date: 20110523
  Receipt Date: 20110523
  Transmission Date: 20111010
  Serious: Yes (Other)
  Sender: FDA-Public Use
  Company Number: None

PATIENT
  Sex: Female
  Weight: 58.0604 kg

DRUGS (1)
  1. CIPROFLOXACIN HCL [Suspect]
     Indication: KIDNEY INFECTION
     Dosage: 500MG  TWICE DAILY PO
     Route: 048
     Dates: start: 20100322, end: 20100330

REACTIONS (33)
  - JOINT SWELLING [None]
  - ASTHENIA [None]
  - BLADDER PAIN [None]
  - MULTIPLE CHEMICAL SENSITIVITY [None]
  - SKIN WRINKLING [None]
  - MUSCLE TWITCHING [None]
  - BACK PAIN [None]
  - DIZZINESS [None]
  - MEMORY IMPAIRMENT [None]
  - CONFUSIONAL STATE [None]
  - MYALGIA [None]
  - MUSCLE SPASMS [None]
  - NIGHTMARE [None]
  - DRY EYE [None]
  - ACTIVITIES OF DAILY LIVING IMPAIRED [None]
  - TENDON DISORDER [None]
  - FATIGUE [None]
  - MASS [None]
  - ENDOCRINE DISORDER [None]
  - ARTHRALGIA [None]
  - BURNING SENSATION [None]
  - POLLAKIURIA [None]
  - NEURALGIA [None]
  - PALPITATIONS [None]
  - INSOMNIA [None]
  - HAEMANGIOMA OF LIVER [None]
  - PARAESTHESIA [None]
  - HYPOAESTHESIA [None]
  - FEELING COLD [None]
  - JOINT CREPITATION [None]
  - ANXIETY [None]
  - OVARIAN CYST RUPTURED [None]
  - IMPAIRED WORK ABILITY [None]
